FAERS Safety Report 11944745 (Version 2)
Quarter: 2016Q1

REPORT INFORMATION
  Report Type: Spontaneous
  Country: DE (occurrence: DE)
  Receive Date: 20160125
  Receipt Date: 20160208
  Transmission Date: 20160526
  Serious: Yes (Death, Hospitalization)
  Sender: FDA-Public Use
  Company Number: DE-WEST-WARD PHARMACEUTICALS CORP.-DE-H14001-16-00117

PATIENT
  Age: 47 Year
  Sex: Male
  Weight: 73 kg

DRUGS (4)
  1. CALCIUM FOLINAT GRY [Suspect]
     Active Substance: LEUCOVORIN CALCIUM
     Indication: COLON CANCER
     Dosage: 800 MG IN 6.5% 250 ML
     Route: 065
     Dates: start: 20151215
  2. RIBOFLUOR [Suspect]
     Active Substance: FLUOROURACIL
     Route: 042
     Dates: start: 20151215
  3. OXALIPLATIN ACCORD [Suspect]
     Active Substance: OXALIPLATIN
     Indication: COLON CANCER
     Dosage: 150 MG IN 6.5% 250 MG
     Route: 065
     Dates: start: 20151215
  4. RIBOFLUOR [Suspect]
     Active Substance: FLUOROURACIL
     Indication: COLON CANCER
     Route: 042
     Dates: start: 20151215

REACTIONS (3)
  - Cardiac failure [Fatal]
  - Arteriospasm coronary [Fatal]
  - Angina pectoris [Fatal]

NARRATIVE: CASE EVENT DATE: 20151216
